FAERS Safety Report 8763730 (Version 1)
Quarter: 2012Q4

REPORT INFORMATION
  Report Type: 
  Country: US (occurrence: US)
  Receive Date: 20120831
  Receipt Date: 20120831
  Transmission Date: 20130627
  Serious: Yes (Death)
  Sender: FDA-Public Use
  Company Number: PHEH2012US017018

PATIENT
  Sex: Female
  Weight: 74 kg

DRUGS (2)
  1. RECLAST [Suspect]
     Dosage: 5 mg, UNK
     Route: 042
     Dates: start: 20100706
  2. RECLAST [Suspect]
     Dosage: 5 mg, UNK
     Route: 042
     Dates: start: 20110706

REACTIONS (3)
  - Cardiac arrest [Fatal]
  - Acute myocardial infarction [Fatal]
  - Arterial disorder [Fatal]
